FAERS Safety Report 23832964 (Version 1)
Quarter: 2024Q2

REPORT INFORMATION
  Report Type: Report from Study
  Country: CA (occurrence: CA)
  Receive Date: 20240508
  Receipt Date: 20240508
  Transmission Date: 20240716
  Serious: Yes (Other)
  Sender: FDA-Public Use
  Company Number: CA-AKCEA THERAPEUTICS, INC.-2024IS004229

PATIENT

DRUGS (18)
  1. TEGSEDI [Suspect]
     Active Substance: INOTERSEN SODIUM
     Indication: Hereditary neuropathic amyloidosis
     Dosage: 284 MILLIGRAM, QW (1 EVERY 1 WEEK)
     Route: 058
  2. TEGSEDI [Suspect]
     Active Substance: INOTERSEN SODIUM
     Dosage: 284 MILLIGRAM, QOW (1 EVERY 2 WEEKS)
     Route: 058
  3. TEGSEDI [Suspect]
     Active Substance: INOTERSEN SODIUM
     Dosage: 284 MG, QOW (BIWEEKLY) (STRENGTH 300 MHG)
     Route: 058
  4. TEGSEDI [Suspect]
     Active Substance: INOTERSEN SODIUM
     Dosage: 284 MG, QOW (BIWEEKLY) (STRENGTH 300 MHG)
     Route: 058
     Dates: start: 20210305
  5. TYLENOL ARTHRITIS PAIN [Concomitant]
     Active Substance: ACETAMINOPHEN
     Indication: Product used for unknown indication
     Dosage: UNK, BID
     Route: 048
     Dates: start: 2019
  6. MELOXICAM [Concomitant]
     Active Substance: MELOXICAM
     Indication: Product used for unknown indication
     Dosage: 7.5 MILLIGRAM, BID
     Route: 048
  7. MELOXICAM [Concomitant]
     Active Substance: MELOXICAM
     Dosage: UNK, BID
     Route: 048
     Dates: start: 2019
  8. CHLORTHALIDONE [Concomitant]
     Active Substance: CHLORTHALIDONE
     Indication: Hypertension
     Dosage: UNK, QD
     Route: 048
     Dates: start: 2019
  9. CHLORTHALIDONE [Concomitant]
     Active Substance: CHLORTHALIDONE
     Indication: Swelling
     Dosage: 50 MILLIGRAM, QD
     Route: 048
  10. CHLORTHALIDONE [Concomitant]
     Active Substance: CHLORTHALIDONE
     Dosage: 25 MILLIGRAM, QD
     Route: 065
  11. CHLORTHALIDONE [Concomitant]
     Active Substance: CHLORTHALIDONE
     Dosage: 12.5 MILLIGRAM, QD
     Route: 065
  12. CHLORTHALIDONE [Concomitant]
     Active Substance: CHLORTHALIDONE
     Dosage: 1/4 PILL
     Route: 065
  13. NEXIUM [Concomitant]
     Active Substance: ESOMEPRAZOLE MAGNESIUM
     Indication: Product used for unknown indication
     Dosage: 40 MILLIGRAM, QD
     Route: 065
  14. EURO-FER [Concomitant]
     Indication: Product used for unknown indication
     Dosage: 300 MILLIGRAM, QD
     Route: 065
  15. ASPIRIN [Concomitant]
     Active Substance: ASPIRIN
     Indication: Product used for unknown indication
     Dosage: 81 MILLIGRAM, QD
     Route: 065
  16. CANDESARTAN [Concomitant]
     Active Substance: CANDESARTAN
     Indication: Product used for unknown indication
     Dosage: 32 MILLIGRAM, QHS (TABLET)
     Route: 065
  17. CADUET [Concomitant]
     Active Substance: AMLODIPINE BESYLATE\ATORVASTATIN CALCIUM
     Indication: Product used for unknown indication
     Dosage: 1 DOSAGE FORM, QHS (40/10 MG 1 TABLET NIGHTLY)
     Route: 065
  18. EZETIMIBE [Concomitant]
     Active Substance: EZETIMIBE
     Indication: Product used for unknown indication
     Dosage: 10 MILLIGRAM, QD
     Route: 065

REACTIONS (6)
  - Poor venous access [Not Recovered/Not Resolved]
  - Pain in extremity [Not Recovered/Not Resolved]
  - Abdominal discomfort [Unknown]
  - Magnetic resonance imaging abnormal [Unknown]
  - Memory impairment [Unknown]
  - Blood pressure increased [Unknown]
